FAERS Safety Report 24238554 (Version 1)
Quarter: 2024Q3

REPORT INFORMATION
  Report Type: Spontaneous
  Country: US (occurrence: None)
  Receive Date: 20240821
  Receipt Date: 20240821
  Transmission Date: 20241016
  Serious: No
  Sender: Public
  Company Number: None

PATIENT
  Age: 77 Year
  Sex: Female
  Weight: 55.8 kg

DRUGS (10)
  1. PAXLOVID [Suspect]
     Active Substance: NIRMATRELVIR\RITONAVIR
     Indication: SARS-CoV-2 test positive
     Route: 048
     Dates: start: 20240808, end: 20240813
  2. VENLAFAXINE [Concomitant]
     Active Substance: VENLAFAXINE HYDROCHLORIDE
  3. BUPROPION [Concomitant]
     Active Substance: BUPROPION
  4. Vits D3 [Concomitant]
  5. METHYLCOBALAMIN [Concomitant]
     Active Substance: METHYLCOBALAMIN
  6. COENZYME Q10 [Concomitant]
     Active Substance: DIETARY SUPPLEMENT\UBIDECARENONE
  7. MAGNESIUM [Concomitant]
  8. BIOTIN [Concomitant]
  9. FISH OIL [Concomitant]
  10. HERBALS\TURMERIC [Concomitant]
     Active Substance: HERBALS\TURMERIC

REACTIONS (2)
  - COVID-19 [None]
  - Muscle spasms [None]

NARRATIVE: CASE EVENT DATE: 20240809
